FAERS Safety Report 18787507 (Version 2)
Quarter: 2021Q4

REPORT INFORMATION
  Report Type: Spontaneous
  Country: EG (occurrence: EG)
  Receive Date: 20210126
  Receipt Date: 20211215
  Transmission Date: 20220303
  Serious: Yes (Death, Other)
  Sender: FDA-Public Use
  Company Number: EG-PFIZER INC-2021065160

PATIENT
  Age: 71 Year
  Sex: Female

DRUGS (3)
  1. IBRANCE [Suspect]
     Active Substance: PALBOCICLIB
     Indication: Breast cancer metastatic
     Dosage: 125 MG, 1X/DAY (FOR 3 WEEKS ON THEN 1 WEEK OFF)
     Route: 048
     Dates: start: 202010
  2. FEMARA [Concomitant]
     Active Substance: LETROZOLE
     Dosage: 1 TAB, 1X/DAY
  3. OSTEOCARE [Concomitant]
     Active Substance: CALCIUM\CHOLECALCIFEROL\MAGNESIUM\ZINC
     Dosage: 2 TABS, 2X/DAY

REACTIONS (1)
  - Death [Fatal]
